FAERS Safety Report 8209228-6 (Version None)
Quarter: 2012Q1

REPORT INFORMATION
  Report Type: 
  Country: None (occurrence: None)
  Receive Date: 20120314
  Receipt Date: 20120305
  Transmission Date: 20120608
  Serious: Yes (Other)
  Sender: FDA-Public Use
  Company Number: PHHY2012JP020326

PATIENT
  Age: 37 Year
  Sex: Female

DRUGS (3)
  1. BETA BLOCKING AGENTS [Suspect]
  2. METHYLDOPA [Suspect]
  3. HYDRALAZINE HYDROCHLORIDE [Suspect]

REACTIONS (2)
  - MATERNAL EXPOSURE DURING PREGNANCY [None]
  - PREMATURE LABOUR [None]
